FAERS Safety Report 5204444-X (Version None)
Quarter: 2007Q1

REPORT INFORMATION
  Report Type: 
  Country: None (occurrence: None)
  Receive Date: 20070110
  Receipt Date: 20060627
  Transmission Date: 20070707
  Serious: No
  Sender: FDA-Public Use
  Company Number: US-BRISTOL-MYERS SQUIBB COMPANY-13328950

PATIENT
  Sex: Female

DRUGS (2)
  1. ABILIFY [Suspect]
     Indication: PSYCHOTIC DISORDER
     Route: 048
     Dates: start: 20060203, end: 20060301
  2. ABILIFY [Suspect]
     Indication: THINKING ABNORMAL
     Route: 048
     Dates: start: 20060203, end: 20060301

REACTIONS (2)
  - ROAD TRAFFIC ACCIDENT [None]
  - VISUAL DISTURBANCE [None]
